FAERS Safety Report 14863640 (Version 1)
Quarter: 2018Q2

REPORT INFORMATION
  Report Type: Spontaneous
  Country: US (occurrence: US)
  Receive Date: 20180508
  Receipt Date: 20180508
  Transmission Date: 20180711
  Serious: No
  Sender: FDA-Public Use
  Company Number: US-ALKERMES INC.-ALK-2017-003048

PATIENT
  Age: 34 Year
  Sex: Male
  Weight: 99.77 kg

DRUGS (1)
  1. VIVITROL [Suspect]
     Active Substance: NALTREXONE
     Indication: DRUG DEPENDENCE
     Dosage: 380 MG, QMO
     Route: 030
     Dates: start: 20170719

REACTIONS (6)
  - Urinary incontinence [Unknown]
  - Asthenia [Recovered/Resolved]
  - Anal incontinence [Unknown]
  - Malaise [Unknown]
  - Drug dependence [Unknown]
  - Vomiting [Unknown]

NARRATIVE: CASE EVENT DATE: 20170719
